FAERS Safety Report 17661106 (Version 5)
Quarter: 2022Q1

REPORT INFORMATION
  Report Type: Report from Study
  Country: EG (occurrence: EG)
  Receive Date: 20200413
  Receipt Date: 20220217
  Transmission Date: 20220423
  Serious: Yes (Hospitalization, Other)
  Sender: FDA-Public Use
  Company Number: EG-BAYER-2020-056556

PATIENT

DRUGS (8)
  1. EYLEA [Suspect]
     Active Substance: AFLIBERCEPT
     Indication: Eye oedema
     Dosage: UNK
     Route: 031
     Dates: start: 20160218
  2. EYLEA [Suspect]
     Active Substance: AFLIBERCEPT
     Dosage: 2ND DOSE ONCE
     Route: 031
     Dates: start: 20160519, end: 20160519
  3. EYLEA [Suspect]
     Active Substance: AFLIBERCEPT
     Dosage: 3RD DOSE ONCE
     Route: 031
     Dates: start: 20160820, end: 20160820
  4. EYLEA [Suspect]
     Active Substance: AFLIBERCEPT
     Dosage: 4TH DOSE ONCE
     Route: 031
     Dates: start: 20161124, end: 20161124
  5. EYLEA [Suspect]
     Active Substance: AFLIBERCEPT
     Dosage: 5TH DOSE, ONCE
     Route: 031
     Dates: start: 20190215, end: 20190215
  6. EYLEA [Suspect]
     Active Substance: AFLIBERCEPT
     Dosage: 6TH, ONCE
     Route: 031
     Dates: start: 20190315, end: 20190315
  7. EYLEA [Suspect]
     Active Substance: AFLIBERCEPT
     Dosage: 7TH, ONCE
     Route: 031
     Dates: start: 20190415, end: 20190415
  8. EYLEA [Suspect]
     Active Substance: AFLIBERCEPT
     Dosage: ONCE, LAST DOSE - THE TOTAL NUMBER OF INJECTION IS 7 (RIGHT EYE) AND 6- 8 (LEFT EYE)
     Route: 031
     Dates: start: 20190905, end: 20190905

REACTIONS (5)
  - Eye haemorrhage [Not Recovered/Not Resolved]
  - Blindness unilateral [Not Recovered/Not Resolved]
  - Retinal detachment [Not Recovered/Not Resolved]
  - Benign prostatic hyperplasia [Unknown]
  - Visual impairment [Not Recovered/Not Resolved]

NARRATIVE: CASE EVENT DATE: 20161201
